FAERS Safety Report 9416050 (Version 1)
Quarter: 2013Q3

REPORT INFORMATION
  Report Type: Spontaneous
  Country: US (occurrence: None)
  Receive Date: 20130723
  Receipt Date: 20130723
  Transmission Date: 20140515
  Serious: Yes (Life-Threatening, Other)
  Sender: FDA-Public Use
  Company Number: None

PATIENT
  Age: 43 Year
  Sex: Female
  Weight: 49 kg

DRUGS (2)
  1. NORCO [Suspect]
     Indication: PROCEDURAL PAIN
     Dosage: 5MG/325MG, Q4HPRN, PO
     Route: 048
     Dates: start: 20130720, end: 20130721
  2. OFIRMEV [Suspect]
     Indication: PROCEDURAL PAIN
     Route: 042
     Dates: start: 20130720, end: 20130721

REACTIONS (5)
  - Shock [None]
  - Hepatic failure [None]
  - International normalised ratio increased [None]
  - Toxicity to various agents [None]
  - Incorrect dose administered [None]
